FAERS Safety Report 15864037 (Version 3)
Quarter: 2019Q2

REPORT INFORMATION
  Report Type: Spontaneous
  Country: US (occurrence: US)
  Receive Date: 20190124
  Receipt Date: 20190412
  Transmission Date: 20190711
  Serious: Yes (Other)
  Sender: FDA-Public Use
  Company Number: US-ASTRAZENECA-2018SF65132

PATIENT
  Age: 6966 Day
  Sex: Male

DRUGS (11)
  1. NEXIUM [Suspect]
     Active Substance: ESOMEPRAZOLE MAGNESIUM
     Route: 048
     Dates: start: 2009, end: 2015
  2. APAP/CODEINE [Concomitant]
     Active Substance: ACETAMINOPHEN\CODEINE PHOSPHATE
     Dosage: 300-30 MG
     Route: 065
  3. ABILIFY [Concomitant]
     Active Substance: ARIPIPRAZOLE
     Route: 065
  4. OMEPRAZOLE. [Suspect]
     Active Substance: OMEPRAZOLE
     Route: 065
     Dates: start: 2009, end: 2015
  5. OMEPRAZOLE. [Suspect]
     Active Substance: OMEPRAZOLE
     Route: 065
     Dates: start: 20150527
  6. IBUPROFEN. [Concomitant]
     Active Substance: IBUPROFEN
     Route: 065
  7. PANTOPRAZOLE [Suspect]
     Active Substance: PANTOPRAZOLE
     Route: 065
     Dates: start: 2009, end: 2015
  8. PANTOPRAZOLE [Suspect]
     Active Substance: PANTOPRAZOLE
     Route: 065
     Dates: start: 20150526
  9. GUANFACINE. [Concomitant]
     Active Substance: GUANFACINE
     Route: 065
  10. ORPHENADRINE [Concomitant]
     Active Substance: ORPHENADRINE
     Route: 065
  11. NEXIUM [Suspect]
     Active Substance: ESOMEPRAZOLE MAGNESIUM
     Route: 048
     Dates: start: 20150220

REACTIONS (4)
  - Rebound acid hypersecretion [Unknown]
  - Acute kidney injury [Unknown]
  - Chronic kidney disease [Unknown]
  - Renal failure [Unknown]

NARRATIVE: CASE EVENT DATE: 20180619
